FAERS Safety Report 6216750-0 (Version None)
Quarter: 2009Q2

REPORT INFORMATION
  Report Type: 
  Country: None (occurrence: None)
  Receive Date: 20090603
  Receipt Date: 20090603
  Transmission Date: 20091009
  Serious: Yes (Hospitalization)
  Sender: FDA-Public Use
  Company Number: None

PATIENT
  Sex: Female
  Weight: 56.1 kg

DRUGS (7)
  1. ERLOTINIB [Suspect]
     Indication: NON-SMALL CELL LUNG CANCER
     Dosage: 1 150MG PO EVERY DAY
     Route: 048
     Dates: start: 20080826
  2. DASATINIB [Suspect]
     Dosage: 70MG PO BID
     Route: 048
  3. ALPRAXOLAM [Concomitant]
  4. ALBUTEROL PRN, PRETREATMENT [Concomitant]
  5. FOSAMAX, PRETREATMENT [Concomitant]
  6. ADVAIR, PRETREATMENT [Concomitant]
  7. CARDIAZEM, PRETREATMENT [Concomitant]

REACTIONS (3)
  - CHRONIC OBSTRUCTIVE PULMONARY DISEASE [None]
  - CONDITION AGGRAVATED [None]
  - PNEUMONIA [None]
